FAERS Safety Report 9084301 (Version 1)
Quarter: 2013Q1

REPORT INFORMATION
  Report Type: Spontaneous
  Country: GB (occurrence: GB)
  Receive Date: 20130218
  Receipt Date: 20130218
  Transmission Date: 20140127
  Serious: Yes (Other)
  Sender: FDA-Public Use
  Company Number: PHHY2009GB12259

PATIENT
  Age: 36 Year
  Sex: Male

DRUGS (6)
  1. CLOZARIL [Suspect]
     Indication: SCHIZOPHRENIA
     Dosage: DF
     Route: 048
     Dates: start: 20090304, end: 20090331
  2. CLOZARIL [Suspect]
     Dosage: BETWEEN 12.5 MG AND 100 MG DAILY
     Route: 048
     Dates: start: 20090321, end: 20090331
  3. OLANZAPINE [Concomitant]
     Indication: MENTAL DISORDER
     Dosage: UNK DF, UNK
     Dates: start: 20080617
  4. VALPROATE SEMISODIUM [Concomitant]
     Indication: AFFECTIVE DISORDER
     Dosage: UNK DF, UNK
     Route: 048
     Dates: start: 20070815
  5. LORAZEPAM [Concomitant]
     Indication: AGITATION
     Dosage: UNK DF, PRN
     Route: 048
  6. RISPERIDONE [Concomitant]
     Indication: MENTAL DISORDER
     Dosage: UNK DF, UNK
     Route: 030

REACTIONS (5)
  - Colitis [Unknown]
  - Diarrhoea [Recovered/Resolved]
  - Haematochezia [Recovered/Resolved]
  - Weight decreased [Unknown]
  - Vomiting [Recovered/Resolved]
